FAERS Safety Report 9669697 (Version 1)
Quarter: 2013Q4

REPORT INFORMATION
  Report Type: Spontaneous
  Country: DK (occurrence: FR)
  Receive Date: 20131105
  Receipt Date: 20131105
  Transmission Date: 20140711
  Serious: Yes (Hospitalization)
  Sender: FDA-Public Use
  Company Number: FR-FRI-1000050744

PATIENT
  Age: 79 Year
  Sex: Male

DRUGS (8)
  1. ESCITALOPRAM [Suspect]
     Indication: DEPRESSION
     Dosage: 1 DF
     Route: 048
  2. XARELTO [Suspect]
     Indication: DEEP VEIN THROMBOSIS
     Dosage: 1 DF
     Route: 048
     Dates: start: 20121207, end: 20130914
  3. TANAKAN [Suspect]
     Indication: COGNITIVE DISORDER
     Dosage: 3 DF
     Route: 048
  4. DOLIPRANE [Concomitant]
     Route: 048
  5. TRANSILANE [Concomitant]
     Indication: CONSTIPATION
     Route: 048
  6. GUTRON [Concomitant]
     Dosage: 6 DF
     Route: 048
     Dates: start: 2011
  7. FLECAINE [Concomitant]
     Dosage: 1 DF
     Route: 048
  8. SERESTA [Concomitant]
     Dosage: 2 DF
     Route: 048

REACTIONS (2)
  - Cerebral haemorrhage [Recovered/Resolved]
  - Drug interaction [Recovered/Resolved]
